FAERS Safety Report 12735856 (Version 1)
Quarter: 2016Q3

REPORT INFORMATION
  Report Type: Spontaneous
  Country: US (occurrence: US)
  Receive Date: 20160913
  Receipt Date: 20160913
  Transmission Date: 20161109
  Serious: No
  Sender: FDA-Public Use
  Company Number: US-JNJFOC-20160721997

PATIENT
  Sex: Female
  Weight: 49.9 kg

DRUGS (2)
  1. IMODIUM A-D [Suspect]
     Active Substance: LOPERAMIDE HYDROCHLORIDE
     Indication: IRRITABLE BOWEL SYNDROME
     Dosage: 1-2 CAPLETS PER ISSUE OF IBSWITH ONE THEN ONE; NO MORE THAN 4 IN 24 HRS. STARTED ON 24-JUL
     Route: 048
  2. IMODIUM A-D [Suspect]
     Active Substance: LOPERAMIDE HYDROCHLORIDE
     Route: 048

REACTIONS (2)
  - Product packaging issue [Unknown]
  - Unintentional use for unapproved indication [Unknown]
